FAERS Safety Report 21513452 (Version 4)
Quarter: 2023Q1

REPORT INFORMATION
  Report Type: Spontaneous
  Country: IN (occurrence: IN)
  Receive Date: 20221027
  Receipt Date: 20230117
  Transmission Date: 20230417
  Serious: Yes (Other)
  Sender: FDA-Public Use
  Company Number: IN-PFIZER INC-PV202200081856

PATIENT
  Age: 11 Year
  Sex: Male

DRUGS (5)
  1. FLUCONAZOLE [Interacting]
     Active Substance: FLUCONAZOLE
     Indication: Antifungal prophylaxis
     Dosage: UNK
  2. TRETINOIN [Interacting]
     Active Substance: TRETINOIN
     Indication: Acute promyelocytic leukaemia
     Dosage: PER CYCLE, LASTING FOR 15 DAYS
  3. TRETINOIN [Interacting]
     Active Substance: TRETINOIN
     Dosage: 25 MG/M2, DAILY
  4. TRETINOIN [Interacting]
     Active Substance: TRETINOIN
     Dosage: UNK, EVERY 15 DAYS
  5. IDARUBICIN [Concomitant]
     Active Substance: IDARUBICIN
     Dosage: FOUR DOSES, CYCLIC

REACTIONS (2)
  - Drug interaction [Recovered/Resolved]
  - Hypercalcaemia [Recovered/Resolved]
